FAERS Safety Report 6236985-0 (Version None)
Quarter: 2009Q2

REPORT INFORMATION
  Report Type: 
  Country: None (occurrence: None)
  Receive Date: 20090619
  Receipt Date: 20090417
  Transmission Date: 20091009
  Serious: No
  Sender: FDA-Public Use
  Company Number: US-ASTRAZENECA-2009UW06380

PATIENT
  Age: 14 Year
  Sex: Female

DRUGS (3)
  1. SYMBICORT [Suspect]
     Indication: ASTHMA
     Dosage: 80/4.5 MCG
     Route: 055
     Dates: start: 20090227
  2. PROAIR HFA [Concomitant]
  3. SINGULAIR [Concomitant]
     Dates: start: 20060301

REACTIONS (3)
  - ASTHMA [None]
  - DEVICE INEFFECTIVE [None]
  - PEAK EXPIRATORY FLOW RATE DECREASED [None]
